FAERS Safety Report 4628594-1 (Version None)
Quarter: 2005Q2

REPORT INFORMATION
  Report Type: 
  Country: None (occurrence: None)
  Receive Date: 20050404
  Receipt Date: 20050323
  Transmission Date: 20051028
  Serious: Yes (Disabling)
  Sender: FDA-Public Use
  Company Number: 200510201BNE

PATIENT
  Age: 46 Year
  Sex: Male
  Weight: 56 kg

DRUGS (4)
  1. CIPROFLOXACIN [Suspect]
     Indication: URINARY TRACT INFECTION
     Dosage: 500 MG, BID, ORAL
     Route: 048
     Dates: start: 20030806, end: 20050210
  2. ESCITALOPRAM [Concomitant]
  3. SALBUTAMOL [Concomitant]
  4. BECLOMETHASONE [Concomitant]

REACTIONS (2)
  - MYALGIA [None]
  - NEURITIS [None]
